FAERS Safety Report 16274266 (Version 2)
Quarter: 2019Q2

REPORT INFORMATION
  Report Type: Report from Study
  Country: US (occurrence: US)
  Receive Date: 20190506
  Receipt Date: 20190515
  Transmission Date: 20190711
  Serious: No
  Sender: FDA-Public Use
  Company Number: US-ROCHE-2311070

PATIENT
  Sex: Female
  Weight: 87.17 kg

DRUGS (2)
  1. OCREVUS [Suspect]
     Active Substance: OCRELIZUMAB
     Indication: RELAPSING MULTIPLE SCLEROSIS
     Dosage: FIRST HALF INFUSION
     Route: 042
     Dates: start: 20190213
  2. OCREVUS [Suspect]
     Active Substance: OCRELIZUMAB
     Dosage: SECOND HALF INFUSION
     Route: 042
     Dates: start: 20190308

REACTIONS (3)
  - Skin papilloma [Unknown]
  - Off label use [Unknown]
  - Intentional product misuse [Unknown]
